FAERS Safety Report 16045876 (Version 1)
Quarter: 2019Q1

REPORT INFORMATION
  Report Type: Report from Study
  Country: BR (occurrence: BR)
  Receive Date: 20190307
  Receipt Date: 20190307
  Transmission Date: 20190418
  Serious: Yes (Other)
  Sender: FDA-Public Use
  Company Number: BR-UCBSA-2019008426

PATIENT
  Age: 50 Year
  Sex: Female
  Weight: 84 kg

DRUGS (1)
  1. CERTOLIZUMAB PEGOL RA [Suspect]
     Active Substance: CERTOLIZUMAB PEGOL
     Indication: RHEUMATOID ARTHRITIS
     Dosage: 400 MG, EV 2 WEEKS(QOW)
     Route: 058
     Dates: start: 201812, end: 201901

REACTIONS (2)
  - Oral candidiasis [Recovering/Resolving]
  - Herpes virus infection [Recovering/Resolving]

NARRATIVE: CASE EVENT DATE: 201901
